FAERS Safety Report 4540711-0 (Version None)
Quarter: 2004Q4

REPORT INFORMATION
  Report Type: 
  Country: None (occurrence: None)
  Receive Date: 20041229
  Receipt Date: 20041223
  Transmission Date: 20050328
  Serious: Yes (Life-Threatening)
  Sender: FDA-Public Use
  Company Number: 200414820FR

PATIENT
  Age: 70 Year
  Sex: Female

DRUGS (3)
  1. LASILIX [Suspect]
     Indication: CARDIAC FAILURE
     Route: 048
     Dates: end: 20041022
  2. TRIATEC [Suspect]
     Indication: CARDIAC FAILURE
     Route: 048
     Dates: end: 20041022
  3. DIFFU K [Suspect]
     Route: 048
     Dates: end: 20041022

REACTIONS (9)
  - BLOOD BICARBONATE DECREASED [None]
  - BLOOD CALCIUM DECREASED [None]
  - BLOOD PH DECREASED [None]
  - CARDIAC ARREST [None]
  - DEHYDRATION [None]
  - DIARRHOEA [None]
  - HAEMODIALYSIS [None]
  - HYPERKALAEMIA [None]
  - RENAL FAILURE [None]
